FAERS Safety Report 25086917 (Version 2)
Quarter: 2025Q3

REPORT INFORMATION
  Report Type: Spontaneous
  Country: US (occurrence: US)
  Receive Date: 20250318
  Receipt Date: 20250930
  Transmission Date: 20251020
  Serious: Yes (Hospitalization, Other)
  Sender: NOVO NORDISK
  Company Number: US-NOVOPROD-1386367

PATIENT
  Age: 52 Year
  Sex: Female
  Weight: 94.331 kg

DRUGS (9)
  1. SEMAGLUTIDE [Suspect]
     Active Substance: SEMAGLUTIDE
     Indication: Obesity
     Dates: start: 20230303, end: 20230420
  2. WEGOVY [Suspect]
     Active Substance: SEMAGLUTIDE
     Dosage: 1 MG, QW
     Dates: start: 20230504, end: 20230530
  3. BENAZEPRIL [Concomitant]
     Active Substance: BENAZEPRIL HYDROCHLORIDE
     Indication: Hypertension
     Dates: start: 20230115, end: 20230415
  4. DOXEPIN [Concomitant]
     Active Substance: DOXEPIN
     Indication: Insomnia
     Dates: start: 20230120
  5. TOPIRAMATE [Concomitant]
     Active Substance: TOPIRAMATE
     Indication: Migraine
     Dates: start: 20230301, end: 20230824
  6. CLENPIQ [Concomitant]
     Active Substance: ANHYDROUS CITRIC ACID\MAGNESIUM OXIDE\SODIUM PICOSULFATE
     Indication: Premedication
     Dates: start: 20230302, end: 20230303
  7. CALCIUM CARBONATE [Concomitant]
     Active Substance: CALCIUM CARBONATE
     Indication: Antacid therapy
     Dates: start: 20220101, end: 20240101
  8. CETIRIZINE HYDROCHLORIDE [Concomitant]
     Active Substance: CETIRIZINE HYDROCHLORIDE
     Indication: Hypersensitivity
     Dates: start: 20190101
  9. CALCIUM POLYCARBOPHIL [Concomitant]
     Active Substance: CALCIUM POLYCARBOPHIL
     Indication: Laxative supportive care
     Dates: start: 20200101

REACTIONS (4)
  - Gastric perforation [Recovered/Resolved]
  - Abdominal pain upper [Recovered/Resolved]
  - Nausea [Unknown]
  - Off label use [Unknown]

NARRATIVE: CASE EVENT DATE: 20230501
